FAERS Safety Report 22257725 (Version 2)
Quarter: 2023Q2

REPORT INFORMATION
  Report Type: Spontaneous
  Country: ES (occurrence: ES)
  Receive Date: 20230427
  Receipt Date: 20230504
  Transmission Date: 20230721
  Serious: Yes (Life-Threatening, Hospitalization, Other)
  Sender: FDA-Public Use
  Company Number: ES-MLMSERVICE-20230417-4229467-1

PATIENT
  Age: 71 Year
  Sex: Female

DRUGS (2)
  1. TRIAMCINOLONE ACETONIDE [Suspect]
     Active Substance: TRIAMCINOLONE ACETONIDE
     Dosage: 40 MG, LOCAL INFILTRATION IN THE LEFT KNEE
  2. DEFLAZACORT [Suspect]
     Active Substance: DEFLAZACORT
     Dosage: 6 MG

REACTIONS (6)
  - Anaphylactic reaction [Unknown]
  - Loss of consciousness [Unknown]
  - Angioedema [Unknown]
  - Pruritus [Unknown]
  - Urticaria [Unknown]
  - Dizziness [Unknown]
